FAERS Safety Report 8110729-X (Version None)
Quarter: 2012Q1

REPORT INFORMATION
  Report Type: 
  Country: None (occurrence: None)
  Receive Date: 20120203
  Receipt Date: 20120130
  Transmission Date: 20120608
  Serious: No
  Sender: FDA-Public Use
  Company Number: US-PFIZER INC-2012027833

PATIENT
  Sex: Female

DRUGS (1)
  1. EPIPEN [Suspect]
     Dosage: UNK

REACTIONS (7)
  - NAUSEA [None]
  - NERVOUSNESS [None]
  - ACCIDENTAL EXPOSURE [None]
  - INJECTION SITE DISCOMFORT [None]
  - INJECTION SITE MASS [None]
  - TREMOR [None]
  - HYPERHIDROSIS [None]
